FAERS Safety Report 20024975 (Version 2)
Quarter: 2021Q4

REPORT INFORMATION
  Report Type: Spontaneous
  Country: US (occurrence: US)
  Receive Date: 20211102
  Receipt Date: 20211109
  Transmission Date: 20220303
  Serious: No
  Sender: FDA-Public Use
  Company Number: US-AMGEN-USASP2021166192

PATIENT
  Age: 86 Year
  Sex: Female

DRUGS (7)
  1. PROLIA [Suspect]
     Active Substance: DENOSUMAB
     Indication: Osteoporosis postmenopausal
     Dosage: 60 MILLIGRAM, Q6MO
     Route: 058
  2. KLONOPIN [Concomitant]
     Active Substance: CLONAZEPAM
     Indication: Stress
     Dosage: UNK, QHS
     Route: 065
  3. TOLTERODINE [TOLTERODINE L-TARTRATE] [Concomitant]
     Indication: Infection
     Dosage: UNK
     Route: 065
     Dates: end: 20211013
  4. PANCREAZE [AMYLASE;LIPASE;PROTEASE NOS] [Concomitant]
     Dosage: 4200 UNIT (1 IN THE MORNING, 1 AT NIGHT)
     Route: 065
  5. WARFARIN SODIUM [Concomitant]
     Active Substance: WARFARIN SODIUM
     Dosage: 4MG FOR 6 DAYS AND ON THURSDAY TAKE 2 MG
     Route: 065
  6. WARFARIN SODIUM [Concomitant]
     Active Substance: WARFARIN SODIUM
     Route: 065
  7. MVI [ASCORBIC ACID;DEXPANTHENOL;ERGOCALCIFEROL;NICOTINAMIDE;PYRIDOXINE [Concomitant]
     Dosage: UNK

REACTIONS (1)
  - Endodontic procedure [Unknown]

NARRATIVE: CASE EVENT DATE: 20190101
